FAERS Safety Report 7658299-4 (Version None)
Quarter: 2011Q3

REPORT INFORMATION
  Report Type: 
  Country: None (occurrence: None)
  Receive Date: 20110805
  Receipt Date: 20110802
  Transmission Date: 20111222
  Serious: No
  Sender: FDA-Public Use
  Company Number: US-PFIZER INC-2011157955

PATIENT
  Sex: Female

DRUGS (3)
  1. CELEBREX [Suspect]
     Indication: PAIN
     Dosage: 200 MG, 1X/DAY AS NEEDED ON AND OFF
     Route: 048
     Dates: end: 20030101
  2. CELEBREX [Suspect]
     Indication: MUSCULOSKELETAL PAIN
     Dosage: 200 MG, 1X/DAY AS NEEDED ON AND OFF
     Route: 048
     Dates: end: 20040101
  3. CELEBREX [Suspect]
     Dosage: 200 MG, 1X/DAY AS NEEDED ON AND OFF
     Route: 048
     Dates: end: 20110101

REACTIONS (1)
  - HYPERTENSION [None]
